FAERS Safety Report 5110834-6 (Version None)
Quarter: 2006Q3

REPORT INFORMATION
  Report Type: 
  Country: None (occurrence: None)
  Receive Date: 20060919
  Receipt Date: 20060906
  Transmission Date: 20061208
  Serious: Yes (Other)
  Sender: FDA-Public Use
  Company Number: PHBS2006TH13609

PATIENT
  Age: 9 Year
  Sex: Male

DRUGS (6)
  1. NEORAL [Suspect]
     Indication: RENAL TRANSPLANT
     Dosage: 5 MG/KG, BID
  2. MYCOPHENOLIC ACID [Suspect]
     Indication: RENAL TRANSPLANT
     Dosage: 200 MG/M2, BID
  3. PREDNISOLONE TAB [Suspect]
     Indication: RENAL TRANSPLANT
     Dosage: SEE IMAGE
  4. CO-TRIMOXAZOLE [Concomitant]
  5. NYSTATIN [Concomitant]
  6. AMLODIPINE [Concomitant]

REACTIONS (10)
  - ANAEMIA HAEMOLYTIC AUTOIMMUNE [None]
  - ANTIBODY TEST POSITIVE [None]
  - BLOOD CREATININE INCREASED [None]
  - BLOOD LACTATE DEHYDROGENASE INCREASED [None]
  - BLOOD SMEAR TEST ABNORMAL [None]
  - COMPLICATIONS OF TRANSPLANTED KIDNEY [None]
  - COOMBS DIRECT TEST POSITIVE [None]
  - HAEMOGLOBINURIA [None]
  - LEUKOCYTOSIS [None]
  - POLYCHROMASIA [None]
